FAERS Safety Report 6380988-2 (Version None)
Quarter: 2009Q3

REPORT INFORMATION
  Report Type: 
  Country: None (occurrence: None)
  Receive Date: 20090929
  Receipt Date: 20090916
  Transmission Date: 20100115
  Serious: Yes (Other)
  Sender: FDA-Public Use
  Company Number: US-PFIZER INC-2009270561

PATIENT
  Age: 70 Year
  Sex: Female
  Weight: 68.027 kg

DRUGS (3)
  1. AROMASIN [Suspect]
     Indication: BREAST CANCER
     Dosage: 25 MG, 1X/DAY
     Route: 048
     Dates: start: 20050101, end: 20090701
  2. SINGULAIR ^DIECKMANN^ [Concomitant]
     Indication: ASTHMA
     Dosage: EVERY NIGHT
     Route: 048
  3. ADVAIR DISKUS 100/50 [Concomitant]
     Indication: ASTHMA

REACTIONS (2)
  - CONTRALATERAL BREAST CANCER [None]
  - NEOPLASM MALIGNANT [None]
